FAERS Safety Report 5522343-0 (Version None)
Quarter: 2007Q4

REPORT INFORMATION
  Report Type: 
  Country: None (occurrence: None)
  Receive Date: 20071120
  Receipt Date: 20071112
  Transmission Date: 20080405
  Serious: Yes (Hospitalization)
  Sender: FDA-Public Use
  Company Number: FR-ELI_LILLY_AND_COMPANY-FR200710006888

PATIENT
  Age: 76 Year
  Sex: Female
  Weight: 50 kg

DRUGS (9)
  1. FORTEO [Suspect]
     Indication: OSTEOPOROSIS
     Dosage: 20 UG, DAILY (1/D)
     Route: 058
     Dates: start: 20061215, end: 20070923
  2. SPECIAFOLDINE [Concomitant]
     Dosage: 4 D/F, WEEKLY (1/W)
     Route: 048
  3. MEDROL [Concomitant]
     Indication: RHEUMATOID ARTHRITIS
     Dosage: 8 MG, DAILY (1/D)
     Route: 048
  4. ATARAX [Concomitant]
  5. RAMIPRIL [Concomitant]
     Indication: CARDIOMYOPATHY
     Dosage: 2500 UG, DAILY (1/D)
     Route: 048
  6. PANTOPRAZOLE SODIUM [Concomitant]
     Dosage: UNK, UNK
     Route: 048
  7. NOVATREX [Concomitant]
     Indication: RHEUMATOID ARTHRITIS
     Dosage: 2500 UG, WEEKLY (1/W)
     Route: 048
  8. PREVISCAN [Concomitant]
     Indication: CARDIOMYOPATHY
     Dosage: 3 D/F, DAILY (1/D)
  9. MONICOR LP [Concomitant]
     Indication: CARDIOMYOPATHY
     Dosage: 40 MG, DAILY (1/D)
     Route: 048

REACTIONS (4)
  - FEBRILE INFECTION [None]
  - LUNG DISORDER [None]
  - RHEUMATOID ARTHRITIS [None]
  - URINARY TRACT INFECTION [None]
